FAERS Safety Report 16266466 (Version 1)
Quarter: 2019Q2

REPORT INFORMATION
  Report Type: Spontaneous
  Country: RU (occurrence: RU)
  Receive Date: 20190502
  Receipt Date: 20190502
  Transmission Date: 20190711
  Serious: Yes (Death)
  Sender: FDA-Public Use
  Company Number: RU-SA-2019SA118110

PATIENT
  Age: 56 Year

DRUGS (2)
  1. PLAVIX [Suspect]
     Active Substance: CLOPIDOGREL BISULFATE
     Dosage: 300 UNK
  2. PLAVIX [Suspect]
     Active Substance: CLOPIDOGREL BISULFATE
     Indication: ANGINA UNSTABLE
     Dosage: 75 MG, UNK

REACTIONS (2)
  - Drug ineffective [Unknown]
  - Myocardial infarction [Fatal]
